FAERS Safety Report 23424914 (Version 5)
Quarter: 2025Q1

REPORT INFORMATION
  Report Type: Report from Study
  Country: FR (occurrence: FR)
  Receive Date: 20240121
  Receipt Date: 20250314
  Transmission Date: 20250409
  Serious: Yes (Life-Threatening, Hospitalization, Other)
  Sender: JAZZ
  Company Number: FR-JAZZ PHARMACEUTICALS-2024-FR-000914

PATIENT

DRUGS (8)
  1. EPIDIOLEX [Suspect]
     Active Substance: CANNABIDIOL
     Indication: Epilepsy
     Route: 048
  2. EPIDIOLEX [Suspect]
     Active Substance: CANNABIDIOL
     Indication: Epilepsy
     Dosage: 4 MILLIGRAM/KILOGRAM, BID
     Route: 048
     Dates: start: 20230712
  3. TEGRETOL [Concomitant]
     Active Substance: CARBAMAZEPINE
     Indication: Product used for unknown indication
     Dosage: 600 MILLIGRAM, BID
  4. TEGRETOL [Concomitant]
     Active Substance: CARBAMAZEPINE
     Dosage: 600 MILLIGRAM, BID
  5. LAMICTAL [Concomitant]
     Active Substance: LAMOTRIGINE
     Indication: Product used for unknown indication
  6. LAMICTAL [Concomitant]
     Active Substance: LAMOTRIGINE
  7. CLOBAZAM [Concomitant]
     Active Substance: CLOBAZAM
     Indication: Product used for unknown indication
  8. CLOBAZAM [Concomitant]
     Active Substance: CLOBAZAM

REACTIONS (3)
  - Suicide attempt [Recovered/Resolved]
  - Spinal fracture [Recovering/Resolving]
  - Vomiting [Recovering/Resolving]

NARRATIVE: CASE EVENT DATE: 20231221
